FAERS Safety Report 4556466-X (Version None)
Quarter: 2005Q1

REPORT INFORMATION
  Report Type: 
  Country: None (occurrence: None)
  Receive Date: 20050114
  Receipt Date: 20050107
  Transmission Date: 20050727
  Serious: Yes (Death)
  Sender: FDA-Public Use
  Company Number: 2004US001312

PATIENT
  Age: 51 Year
  Sex: Female
  Weight: 85 kg

DRUGS (12)
  1. AMBISOME [Suspect]
     Indication: FEBRILE NEUTROPENIA
     Dosage: 3.00 MG/KG, UID/QD, INTRAVENOUS
     Route: 042
     Dates: start: 20041021, end: 20041022
  2. TIENAM (IMIPENEM, CILASTATIN, CILASTATIN SODIUM) [Concomitant]
  3. AMIKIN [Concomitant]
  4. CIPROFLOXACIN [Concomitant]
  5. VANCOCIN HCL [Concomitant]
  6. BACTRIM DS [Concomitant]
  7. ABELCET [Concomitant]
  8. IDARUBICIN HCL [Concomitant]
  9. CYTARABINE [Concomitant]
  10. ETOPOSIDE [Concomitant]
  11. ASPEGIC 1000 [Concomitant]
  12. PRO-DAFALGAN (PROPACETAMOL HYDROCHLORIDE) [Concomitant]

REACTIONS (5)
  - CARDIAC ARREST [None]
  - CHILLS [None]
  - INFUSION RELATED REACTION [None]
  - PLATELET COUNT DECREASED [None]
  - PYREXIA [None]
